FAERS Safety Report 5781437-5 (Version None)
Quarter: 2008Q2

REPORT INFORMATION
  Report Type: 
  Country: None (occurrence: None)
  Receive Date: 20080623
  Receipt Date: 20080306
  Transmission Date: 20081010
  Serious: No
  Sender: FDA-Public Use
  Company Number: US-ASTRAZENECA-2008UW04731

PATIENT
  Age: 46 Year
  Sex: Female
  Weight: 59.9 kg

DRUGS (1)
  1. ENTOCORT EC [Suspect]
     Indication: CROHN'S DISEASE
     Route: 048

REACTIONS (4)
  - CONTUSION [None]
  - FACE OEDEMA [None]
  - HYPERHIDROSIS [None]
  - OEDEMA PERIPHERAL [None]
